FAERS Safety Report 7489707-X (Version None)
Quarter: 2011Q2

REPORT INFORMATION
  Report Type: 
  Country: None (occurrence: None)
  Receive Date: 20110519
  Receipt Date: 20110510
  Transmission Date: 20111010
  Serious: No
  Sender: FDA-Public Use
  Company Number: US-BIOGENIDEC-2011BI017830

PATIENT
  Sex: Female

DRUGS (2)
  1. TYSABRI [Suspect]
     Indication: MULTIPLE SCLEROSIS
     Route: 042
     Dates: start: 20090326, end: 20101007
  2. TYSABRI [Suspect]
     Route: 042
     Dates: start: 20061122, end: 20081218

REACTIONS (2)
  - MULTIPLE SCLEROSIS RELAPSE [None]
  - CENTRAL VENOUS CATHETERISATION [None]
